FAERS Safety Report 25271749 (Version 2)
Quarter: 2025Q2

REPORT INFORMATION
  Report Type: Spontaneous
  Country: US (occurrence: US)
  Receive Date: 20250506
  Receipt Date: 20250605
  Transmission Date: 20250717
  Serious: Yes (Hospitalization, Disabling)
  Sender: ASTELLAS
  Company Number: US-ASTELLAS-2025-AER-024144

PATIENT
  Age: 84 Year
  Sex: Male
  Weight: 107.5 kg

DRUGS (4)
  1. XTANDI [Suspect]
     Active Substance: ENZALUTAMIDE
     Indication: Prostate cancer
     Route: 048
     Dates: start: 2021, end: 2025
  2. XTANDI [Suspect]
     Active Substance: ENZALUTAMIDE
     Route: 048
     Dates: start: 2025
  3. TALZENNA [Suspect]
     Active Substance: TALAZOPARIB TOSYLATE
     Indication: Prostate cancer
     Route: 048
     Dates: start: 202411, end: 202504
  4. TALZENNA [Suspect]
     Active Substance: TALAZOPARIB TOSYLATE
     Dosage: 1/2 DOSE
     Route: 048
     Dates: start: 202504

REACTIONS (3)
  - Embolic stroke [Recovering/Resolving]
  - Atrial fibrillation [Recovering/Resolving]
  - Underdose [Unknown]

NARRATIVE: CASE EVENT DATE: 20210101
